FAERS Safety Report 15126410 (Version 2)
Quarter: 2018Q3

REPORT INFORMATION
  Report Type: Spontaneous
  Country: IT (occurrence: IT)
  Receive Date: 20180710
  Receipt Date: 20180710
  Transmission Date: 20181010
  Serious: Yes (Other)
  Sender: FDA-Public Use
  Company Number: IT-BAYER-2018-121884

PATIENT
  Age: 51 Year
  Sex: Male

DRUGS (3)
  1. REGORAFENIB. [Suspect]
     Active Substance: REGORAFENIB
     Indication: COLORECTAL ADENOCARCINOMA
     Dosage: 160 MF DAILY FOR 3 CONSECUTIVE WEEKS ONE WEEK REST
     Dates: start: 201403
  2. REGORAFENIB. [Suspect]
     Active Substance: REGORAFENIB
     Indication: COLORECTAL ADENOCARCINOMA
     Dosage: DAILY DOSE 40 MG (1TABLET)
  3. REGORAFENIB. [Suspect]
     Active Substance: REGORAFENIB
     Indication: COLORECTAL ADENOCARCINOMA
     Dosage: 3 TABLETS A DAY (120 MG DAILY)
     Dates: end: 201511

REACTIONS (11)
  - Hypertension [None]
  - Alanine aminotransferase increased [None]
  - Skin lesion [None]
  - Palmar-plantar erythrodysaesthesia syndrome [None]
  - Aspartate aminotransferase increased [None]
  - Metastases to lung [None]
  - Metastases to skin [None]
  - Arthropathy [None]
  - Fatigue [Recovering/Resolving]
  - Blood bilirubin unconjugated increased [None]
  - Hyperbilirubinaemia [None]

NARRATIVE: CASE EVENT DATE: 201511
